FAERS Safety Report 6771703-9 (Version None)
Quarter: 2010Q2

REPORT INFORMATION
  Report Type: 
  Country: None (occurrence: None)
  Receive Date: 20100616
  Receipt Date: 20090528
  Transmission Date: 20101027
  Serious: No
  Sender: FDA-Public Use
  Company Number: US-ASTRAZENECA-2009UW13504

PATIENT
  Sex: Female
  Weight: 62.1 kg

DRUGS (5)
  1. ATACAND [Suspect]
     Route: 048
  2. ATENOLOL [Concomitant]
  3. NEXIUM [Concomitant]
  4. LIBRAX [Concomitant]
  5. REGLAN [Concomitant]

REACTIONS (2)
  - COUGH [None]
  - HEART RATE IRREGULAR [None]
